FAERS Safety Report 7796249-0 (Version None)
Quarter: 2011Q4

REPORT INFORMATION
  Report Type: 
  Country: None (occurrence: None)
  Receive Date: 20111004
  Receipt Date: 20111003
  Transmission Date: 20120403
  Serious: Yes (Other)
  Sender: FDA-Public Use
  Company Number: US-MERCK-1105USA02483

PATIENT
  Age: 58 Year
  Sex: Male
  Weight: 81 kg

DRUGS (2)
  1. IVEMEND [Suspect]
     Route: 065
     Dates: start: 20110516
  2. IVEMEND [Suspect]
     Indication: PROPHYLAXIS OF NAUSEA AND VOMITING
     Route: 041
     Dates: start: 20110914, end: 20110914

REACTIONS (4)
  - DYSPNOEA [None]
  - FLUSHING [None]
  - BACK PAIN [None]
  - FEELING HOT [None]
